FAERS Safety Report 15879537 (Version 1)
Quarter: 2019Q1

REPORT INFORMATION
  Report Type: Spontaneous
  Country: US (occurrence: US)
  Receive Date: 20190104
  Receipt Date: 20190104
  Transmission Date: 20190417
  Serious: Yes (Life-Threatening)
  Sender: FDA-Public Use
  Company Number: None

PATIENT
  Age: 64 Year
  Sex: Female

DRUGS (5)
  1. B-12 VITAMIN [Concomitant]
  2. PROPECIA [Concomitant]
     Active Substance: FINASTERIDE
  3. ZOLOFT [Concomitant]
     Active Substance: SERTRALINE HYDROCHLORIDE
  4. ZINC. [Concomitant]
     Active Substance: ZINC
  5. BOTOX [Suspect]
     Active Substance: ONABOTULINUMTOXINA
     Indication: DRUG THERAPY
     Dosage: ?          OTHER FREQUENCY:EVERY 3 MONTHS;?

REACTIONS (4)
  - Emotional distress [None]
  - Alopecia [None]
  - Vision blurred [None]
  - Product label issue [None]

NARRATIVE: CASE EVENT DATE: 2008
